FAERS Safety Report 12402801 (Version 2)
Quarter: 2016Q2

REPORT INFORMATION
  Report Type: Spontaneous
  Country: US (occurrence: US)
  Receive Date: 20160525
  Receipt Date: 20160527
  Transmission Date: 20160815
  Serious: No
  Sender: FDA-Public Use
  Company Number: US-SA-2016SA075641

PATIENT
  Sex: Male

DRUGS (3)
  1. TOUJEO [Concomitant]
     Active Substance: INSULIN GLARGINE
     Dosage: DOSE:40 UNIT(S)
     Dates: start: 2016
  2. SOLOSTAR [Concomitant]
     Active Substance: DEVICE
     Dates: start: 2016
  3. LANTUS [Suspect]
     Active Substance: INSULIN GLARGINE
     Indication: DIABETES MELLITUS
     Route: 065
     Dates: end: 201601

REACTIONS (2)
  - Feeding disorder [Unknown]
  - Blood glucose increased [Unknown]
